FAERS Safety Report 14020100 (Version 2)
Quarter: 2017Q4

REPORT INFORMATION
  Report Type: Spontaneous
  Country: IT (occurrence: IT)
  Receive Date: 20170928
  Receipt Date: 20171016
  Transmission Date: 20180321
  Serious: Yes (Death, Other)
  Sender: FDA-Public Use
  Company Number: PHHY2017IT140140

PATIENT
  Sex: Female

DRUGS (1)
  1. GILENYA [Suspect]
     Active Substance: FINGOLIMOD HYDROCHLORIDE
     Indication: RELAPSING-REMITTING MULTIPLE SCLEROSIS
     Dosage: UNK
     Route: 065
     Dates: start: 201110, end: 201303

REACTIONS (8)
  - Maternal exposure during pregnancy [Unknown]
  - Quadriplegia [Unknown]
  - Cognitive disorder [Recovering/Resolving]
  - Lymphocyte count decreased [Unknown]
  - Septic shock [Fatal]
  - Multiple sclerosis relapse [Unknown]
  - Rebound effect [Unknown]
  - Locked-in syndrome [Recovering/Resolving]

NARRATIVE: CASE EVENT DATE: 201304
